FAERS Safety Report 15023633 (Version 1)
Quarter: 2018Q2

REPORT INFORMATION
  Report Type: Report from Study
  Country: CO (occurrence: CO)
  Receive Date: 20180618
  Receipt Date: 20180618
  Transmission Date: 20180711
  Serious: Yes (Life-Threatening, Other)
  Sender: FDA-Public Use
  Company Number: CO-UCBSA-2018026499

PATIENT
  Age: 50 Year
  Sex: Male

DRUGS (2)
  1. LACOSAMIDE. [Suspect]
     Active Substance: LACOSAMIDE
     Indication: EPILEPSY
     Dosage: UNK
     Route: 048
  2. LACOSAMIDE. [Concomitant]
     Active Substance: LACOSAMIDE
     Indication: EPILEPSY
     Dosage: UNK
     Route: 048

REACTIONS (1)
  - Seizure [Unknown]
